FAERS Safety Report 11906728 (Version 1)
Quarter: 2016Q1

REPORT INFORMATION
  Report Type: Spontaneous
  Country: US (occurrence: None)
  Receive Date: 20160108
  Receipt Date: 20160108
  Transmission Date: 20160526
  Serious: No
  Sender: FDA-Public Use
  Company Number: None

PATIENT
  Sex: Female

DRUGS (2)
  1. LORAZEPAM-MYLAN AND WATSON ATIVIS [Suspect]
     Active Substance: LORAZEPAM
     Indication: ANXIETY
     Route: 048
  2. LORAZEPAM-MYLAN AND WATSON ATIVIS [Suspect]
     Active Substance: LORAZEPAM
     Indication: SEIZURE
     Route: 048

REACTIONS (5)
  - Diverticulum [None]
  - Fluid retention [None]
  - Gastrointestinal disorder [None]
  - Product substitution issue [None]
  - Urine abnormality [None]
